FAERS Safety Report 21132984 (Version 1)
Quarter: 2022Q3

REPORT INFORMATION
  Report Type: Spontaneous
  Country: ES (occurrence: ES)
  Receive Date: 20220726
  Receipt Date: 20220726
  Transmission Date: 20221027
  Serious: Yes (Hospitalization)
  Sender: FDA-Public Use
  Company Number: None

PATIENT
  Age: 68 Year
  Sex: Female

DRUGS (4)
  1. ATORVASTATIN [Suspect]
     Active Substance: ATORVASTATIN
     Indication: Cerebrovascular accident
     Dosage: 80 MG, QD (7400A)
     Route: 048
     Dates: start: 20220614
  2. ASPIRIN [Concomitant]
     Active Substance: ASPIRIN
     Indication: Product used for unknown indication
     Dosage: 100 MG, QD
     Route: 048
     Dates: start: 20220614
  3. VIMPAT [Concomitant]
     Active Substance: LACOSAMIDE
     Indication: Cerebrovascular accident
     Dosage: 50 MG, QD
     Route: 048
     Dates: start: 20220614
  4. OMEPRAZOLE [Concomitant]
     Active Substance: OMEPRAZOLE
     Indication: Product used for unknown indication
     Dosage: 20 MG, Q24H
     Route: 065
     Dates: start: 20220614

REACTIONS (1)
  - Eosinophilic fasciitis [Recovering/Resolving]

NARRATIVE: CASE EVENT DATE: 20220621
